FAERS Safety Report 4853323-6 (Version None)
Quarter: 2005Q4

REPORT INFORMATION
  Report Type: 
  Country: None (occurrence: None)
  Receive Date: 20051212
  Receipt Date: 20051128
  Transmission Date: 20060501
  Serious: Yes (Other)
  Sender: FDA-Public Use
  Company Number: GBWYE997124AUG04

PATIENT
  Sex: Female

DRUGS (1)
  1. EFFEXOR [Suspect]
     Indication: DEPRESSION

REACTIONS (8)
  - ABORTION SPONTANEOUS [None]
  - CHROMOSOME ABNORMALITY [None]
  - DRUG EXPOSURE DURING PREGNANCY [None]
  - PATHOLOGICAL FRACTURE [None]
  - PULMONARY ARTERY ATRESIA [None]
  - RENAL APLASIA [None]
  - TRISOMY 21 [None]
  - VENTRICULAR SEPTAL DEFECT [None]
